FAERS Safety Report 6405760-6 (Version None)
Quarter: 2009Q4

REPORT INFORMATION
  Report Type: 
  Country: None (occurrence: None)
  Receive Date: 20091019
  Receipt Date: 20091009
  Transmission Date: 20100525
  Serious: Yes (Other)
  Sender: FDA-Public Use
  Company Number: US-BAYER-200936301NA

PATIENT
  Age: 32 Year
  Sex: Female

DRUGS (3)
  1. CIPRO [Suspect]
     Indication: HYSTERECTOMY
     Dates: start: 19980101
  2. TOPAMAX [Concomitant]
  3. ADDERALL 10 [Concomitant]
     Indication: FATIGUE

REACTIONS (4)
  - DRUG HYPERSENSITIVITY [None]
  - DYSPNOEA [None]
  - ERYTHEMA [None]
  - URTICARIA [None]
